FAERS Safety Report 8057889-7 (Version None)
Quarter: 2012Q1

REPORT INFORMATION
  Report Type: 
  Country: None (occurrence: None)
  Receive Date: 20120120
  Receipt Date: 20120109
  Transmission Date: 20120608
  Serious: Yes (Other)
  Sender: FDA-Public Use
  Company Number: CA-BAXTER-2012BH001085

PATIENT
  Age: 17 Year
  Sex: Female

DRUGS (1)
  1. LIDOCAINE HCL [Suspect]
     Indication: PAIN MANAGEMENT
     Route: 065
     Dates: start: 20111201

REACTIONS (3)
  - PRURITUS [None]
  - DYSPNOEA [None]
  - SWELLING [None]
